FAERS Safety Report 5092755-0 (Version None)
Quarter: 2006Q3

REPORT INFORMATION
  Report Type: 
  Country: None (occurrence: None)
  Receive Date: 20060828
  Receipt Date: 20060816
  Transmission Date: 20061208
  Serious: Yes (Congenital Anomaly)
  Sender: FDA-Public Use
  Company Number: FEI2006-1180

PATIENT

DRUGS (2)
  1. PARAGARD T380A (INTRAUTERINE CONTRACEPTIVES) [Suspect]
  2. FOLIC ACID [Concomitant]

REACTIONS (4)
  - ABORTION INDUCED [None]
  - DRUG EXPOSURE BEFORE PREGNANCY [None]
  - FOETAL DISORDER [None]
  - PREGNANCY [None]
